FAERS Safety Report 9631256 (Version 1)
Quarter: 2013Q4

REPORT INFORMATION
  Report Type: Spontaneous
  Country: US (occurrence: None)
  Receive Date: 20131015
  Receipt Date: 20131015
  Transmission Date: 20140711
  Serious: Yes (Other)
  Sender: FDA-Public Use
  Company Number: KAD201310-001303

PATIENT
  Age: 46 Year
  Sex: Female

DRUGS (3)
  1. RIBAVIRIN (RIBAVIRIN) [Suspect]
     Indication: HEPATITIS C
     Route: 048
     Dates: start: 20130220
  2. PEGINTERFERON ALFA-2B [Suspect]
     Indication: HEPATITIS C
     Dosage: FOR INJECTION ONCE WEEKLY
     Route: 058
     Dates: start: 20130220
  3. INCIVO [Suspect]
     Indication: HEPATITIS C
     Dosage: THRICE DAILY
     Dates: start: 20130220

REACTIONS (5)
  - Fatigue [None]
  - Hypophagia [None]
  - Mood swings [None]
  - Nausea [None]
  - Paranoia [None]
